FAERS Safety Report 9785338 (Version 1)
Quarter: 2013Q4

REPORT INFORMATION
  Report Type: Spontaneous
  Country: US (occurrence: US)
  Receive Date: 20131227
  Receipt Date: 20131227
  Transmission Date: 20140711
  Serious: No
  Sender: FDA-Public Use
  Company Number: US-MYLANLABS-2012S1023627

PATIENT
  Age: 91 Year
  Sex: Male
  Weight: 74.84 kg

DRUGS (3)
  1. LEVETIRACETAM TABLETS [Suspect]
     Indication: CONVULSION
     Route: 048
     Dates: start: 201205
  2. VANCOMYCIN HYDROCHLORIDE [Concomitant]
     Indication: INFECTION
     Dates: start: 201208, end: 201210
  3. DOXYCYCLINE [Concomitant]
     Indication: INFECTION
     Dates: start: 201210

REACTIONS (2)
  - Chills [Not Recovered/Not Resolved]
  - Dry skin [Not Recovered/Not Resolved]
